FAERS Safety Report 16326983 (Version 1)
Quarter: 2019Q2

REPORT INFORMATION
  Report Type: Spontaneous
  Country: US (occurrence: US)
  Receive Date: 20190411
  Receipt Date: 20190411
  Transmission Date: 20190711
  Serious: No
  Sender: FDA-Public Use
  Company Number: None

PATIENT
  Age: 70 Year
  Sex: Male
  Weight: 83 kg

DRUGS (3)
  1. LENALIDOMIDE (CC-5013) [Suspect]
     Active Substance: LENALIDOMIDE
     Dates: end: 20190402
  2. VELCADE [Suspect]
     Active Substance: BORTEZOMIB
     Dates: end: 20190327
  3. DEXAMETHASONE. [Suspect]
     Active Substance: DEXAMETHASONE
     Dates: end: 20190328

REACTIONS (6)
  - Diarrhoea [None]
  - Blood creatinine increased [None]
  - Fatigue [None]
  - Dehydration [None]
  - Body temperature increased [None]
  - Hypotension [None]

NARRATIVE: CASE EVENT DATE: 20190403
